FAERS Safety Report 10496487 (Version 5)
Quarter: 2014Q4

REPORT INFORMATION
  Report Type: Spontaneous
  Country: GB (occurrence: GB)
  Receive Date: 20141004
  Receipt Date: 20141208
  Transmission Date: 20150528
  Serious: Yes (Disabling, Other)
  Sender: FDA-Public Use
  Company Number: GB-ABBVIE-14K-167-1289694-00

PATIENT
  Age: 42 Year
  Sex: Female
  Weight: 53.3 kg

DRUGS (3)
  1. HUMIRA [Suspect]
     Active Substance: ADALIMUMAB
     Indication: PSORIASIS
  2. HUMIRA [Suspect]
     Active Substance: ADALIMUMAB
     Indication: PSORIASIS
     Route: 058
     Dates: start: 20140314, end: 20140418
  3. CYCLOSPORIN [Concomitant]
     Active Substance: CYCLOSPORINE
     Indication: PSORIASIS
     Route: 048
     Dates: start: 20080715

REACTIONS (15)
  - Arthralgia [Not Recovered/Not Resolved]
  - Haematocrit decreased [Unknown]
  - Arthritis [Recovering/Resolving]
  - Arthritis [Unknown]
  - Contusion [Unknown]
  - White blood cell count increased [Unknown]
  - Synovitis [Recovering/Resolving]
  - Injection site erythema [Not Recovered/Not Resolved]
  - Injection site swelling [Not Recovered/Not Resolved]
  - C-reactive protein increased [Unknown]
  - Joint swelling [Recovering/Resolving]
  - Arthropathy [Recovering/Resolving]
  - Finger deformity [Not Recovered/Not Resolved]
  - Platelet count increased [Unknown]
  - Haemoglobin decreased [Unknown]

NARRATIVE: CASE EVENT DATE: 2014
